FAERS Safety Report 21005272 (Version 1)
Quarter: 2022Q2

REPORT INFORMATION
  Report Type: Spontaneous
  Country: CN (occurrence: CN)
  Receive Date: 20220624
  Receipt Date: 20220624
  Transmission Date: 20220721
  Serious: Yes (Other)
  Sender: FDA-Public Use
  Company Number: CN-PFIZER INC-PV202200007800

PATIENT
  Age: 53 Year
  Sex: Male
  Weight: 65 kg

DRUGS (5)
  1. NIRMATRELVIR\RITONAVIR [Suspect]
     Active Substance: NIRMATRELVIR\RITONAVIR
     Indication: COVID-19 pneumonia
     Dosage: [PF-07321332 300 MG]/[RITONAVIR 100 MG]; 2X/DAY
     Route: 048
     Dates: start: 20220413, end: 20220418
  2. AVELOX [Concomitant]
     Active Substance: MOXIFLOXACIN HYDROCHLORIDE
     Indication: Anti-infective therapy
     Dosage: 400 MG, 1X/DAY
     Route: 048
     Dates: start: 20220413, end: 20220418
  3. LIAN HUA QING WEN [Concomitant]
     Indication: COVID-19 pneumonia
     Dosage: 1 SACHET, 1X/DAY
     Route: 048
     Dates: start: 20220409, end: 20220414
  4. ASMETON [Concomitant]
     Active Substance: AMINOPHYLLINE\CHLORPHENIRAMINE MALEATE\METHOXYPHENAMINE HYDROCHLORIDE\NOSCAPINE
     Indication: Antitussive therapy
     Dosage: UNK
     Dates: start: 20220413
  5. QIE NUO [Concomitant]
     Indication: Productive cough
     Dosage: UNK
     Dates: start: 20220413

REACTIONS (1)
  - Hypertension [Recovering/Resolving]

NARRATIVE: CASE EVENT DATE: 20220416
